FAERS Safety Report 7096815-4 (Version None)
Quarter: 2010Q4

REPORT INFORMATION
  Report Type: 
  Country: None (occurrence: None)
  Receive Date: 20101111
  Receipt Date: 20101027
  Transmission Date: 20110411
  Serious: Yes (Other)
  Sender: FDA-Public Use
  Company Number: JP-PFIZER INC-2010084296

PATIENT
  Age: 66 Year
  Sex: Male
  Weight: 41 kg

DRUGS (19)
  1. VFEND [Interacting]
     Dosage: 300 MG, 2X/DAY
     Route: 048
     Dates: start: 20091215, end: 20091215
  2. VFEND [Interacting]
     Dosage: 200 MG, 2X/DAY
     Route: 048
     Dates: start: 20091216, end: 20091226
  3. VFEND [Interacting]
     Indication: BRONCHOPULMONARY ASPERGILLOSIS
     Dosage: 200 MG, 2X/DAY
     Route: 042
     Dates: start: 20091227, end: 20100117
  4. ARICEPT [Interacting]
     Route: 048
  5. LENDORMIN [Interacting]
     Route: 048
  6. MEROPENEM [Suspect]
     Indication: BRONCHOPULMONARY ASPERGILLOSIS
     Dosage: UNK
     Dates: start: 20091219, end: 20091228
  7. AMPHOTERICIN B [Suspect]
     Dosage: 1.5 MG, UNK
     Dates: start: 20091224
  8. CIPROFLOXACIN HCL [Suspect]
     Dosage: UNK
     Dates: start: 20100112
  9. VANCOMYCIN HYDROCHLORIDE [Suspect]
     Dosage: UNK
     Dates: start: 20100113
  10. MICARDIS [Concomitant]
  11. FLUITRAN [Concomitant]
  12. 8-HOUR BAYER [Concomitant]
  13. FLAVERIC [Concomitant]
  14. MUCODYNE [Concomitant]
  15. FAMOTIDINE [Concomitant]
  16. INSULIN [Concomitant]
     Indication: DIABETES MELLITUS
     Dosage: UNK
     Route: 041
  17. HUMALOG MIX [Concomitant]
  18. HUMALOG [Concomitant]
  19. HUMULIN R [Concomitant]

REACTIONS (6)
  - DIZZINESS [None]
  - DRUG LEVEL INCREASED [None]
  - FEELING ABNORMAL [None]
  - GAZE PALSY [None]
  - HEPATIC FUNCTION ABNORMAL [None]
  - HICCUPS [None]
